FAERS Safety Report 5136718-5 (Version None)
Quarter: 2006Q4

REPORT INFORMATION
  Report Type: 
  Country: None (occurrence: None)
  Receive Date: 20061023
  Receipt Date: 20061019
  Transmission Date: 20070319
  Serious: Yes (Hospitalization)
  Sender: FDA-Public Use
  Company Number: 2006-BP-12274RO

PATIENT
  Age: 43 Year
  Sex: Male

DRUGS (3)
  1. LITHIUM CARBONATE [Suspect]
     Indication: BIPOLAR DISORDER
     Dosage: 400 MG X 50 TABS (INT. OVERDOSE) (400 MG), PO
     Route: 048
  2. CLONAZEPAM [Suspect]
     Dosage: 2 MG X 45 TABS (INT. OVERDOSE) (2 MG), PO
     Route: 048
  3. CHLORAZEPATE (CLORAZEPATE DIPOTASSIUM) [Suspect]
     Dosage: 10 MG X 10 TABS (INT. OVERDOSE) (10 MG), PO
     Route: 048

REACTIONS (5)
  - ANTIPSYCHOTIC DRUG LEVEL INCREASED [None]
  - CONFUSIONAL STATE [None]
  - HAEMODIALYSIS [None]
  - SOMNOLENCE [None]
  - SUICIDE ATTEMPT [None]
